FAERS Safety Report 6400885-3 (Version None)
Quarter: 2009Q4

REPORT INFORMATION
  Report Type: 
  Country: None (occurrence: None)
  Receive Date: 20091009
  Receipt Date: 20090925
  Transmission Date: 20100525
  Serious: Yes (Hospitalization, Other)
  Sender: FDA-Public Use
  Company Number: 233185K09USA

PATIENT
  Age: 44 Year
  Sex: Female

DRUGS (1)
  1. REBIF [Suspect]
     Indication: MULTIPLE SCLEROSIS
     Dosage: 44 MCG, 3 IN 1 WEEKS; SUBCUTANEOUS
     Route: 058
     Dates: start: 20090120, end: 20090313

REACTIONS (3)
  - ABDOMINAL HERNIA [None]
  - INJECTION SITE REACTION [None]
  - INTERVERTEBRAL DISC PROTRUSION [None]
